FAERS Safety Report 8496881-5 (Version None)
Quarter: 2012Q3

REPORT INFORMATION
  Report Type: 
  Country: None (occurrence: None)
  Receive Date: 20120709
  Receipt Date: 20120628
  Transmission Date: 20120928
  Serious: Yes (Death)
  Sender: FDA-Public Use
  Company Number: CA-ELI_LILLY_AND_COMPANY-CA201206009720

PATIENT
  Age: 88 Year
  Sex: Female

DRUGS (10)
  1. FORTEO [Suspect]
     Indication: OSTEOPOROSIS
     Dosage: 20 UG, QD
     Route: 058
     Dates: start: 20120326
  2. ATASOL                             /00020001/ [Concomitant]
  3. FUROSEMIDE [Concomitant]
  4. OMEPRAZOLE [Concomitant]
  5. OXYCODONE HCL [Concomitant]
  6. CALCITE [Concomitant]
  7. COUMADIN [Concomitant]
  8. VITAMIN B-12 [Concomitant]
  9. SENNA-MINT WAF [Concomitant]
  10. LORAZEPAM [Concomitant]

REACTIONS (1)
  - DEATH [None]
